FAERS Safety Report 23960559 (Version 1)
Quarter: 2024Q2

REPORT INFORMATION
  Report Type: Spontaneous
  Country: US (occurrence: None)
  Receive Date: 20240610
  Receipt Date: 20240610
  Transmission Date: 20240716
  Serious: Yes (Other)
  Sender: FDA-Public Use
  Company Number: None

PATIENT
  Age: 25 Year
  Sex: Female
  Weight: 86.18 kg

DRUGS (1)
  1. PARAGARD T 380A [Suspect]
     Active Substance: COPPER

REACTIONS (9)
  - Muscle spasms [None]
  - Pain [None]
  - Speech disorder [None]
  - Hypoaesthesia [None]
  - Paraesthesia [None]
  - Dizziness [None]
  - Muscle spasms [None]
  - Vaginal haemorrhage [None]
  - Hypoaesthesia [None]

NARRATIVE: CASE EVENT DATE: 20240609
